FAERS Safety Report 6590836-3 (Version None)
Quarter: 2010Q1

REPORT INFORMATION
  Report Type: 
  Country: None (occurrence: None)
  Receive Date: 20100219
  Receipt Date: 20100207
  Transmission Date: 20100710
  Serious: Yes (Other)
  Sender: FDA-Public Use
  Company Number: US-PFIZER INC-2010015774

PATIENT
  Sex: Female
  Weight: 45.351 kg

DRUGS (1)
  1. CHANTIX [Suspect]
     Dosage: UNK
     Route: 048
     Dates: start: 20100127, end: 20100205

REACTIONS (3)
  - APHONIA [None]
  - GOITRE [None]
  - THYROID MASS [None]
